FAERS Safety Report 8974143 (Version 1)
Quarter: 2012Q4

REPORT INFORMATION
  Report Type: Spontaneous
  Country: US (occurrence: None)
  Receive Date: 20121213
  Receipt Date: 20121213
  Transmission Date: 20130627
  Serious: Yes (Hospitalization)
  Sender: FDA-Public Use
  Company Number: None

PATIENT
  Age: 59 Year
  Sex: Female

DRUGS (1)
  1. OMNIPAQUE [Suspect]
     Dosage: 105 ML IV, 80 ML IV
     Route: 042
     Dates: start: 20120918, end: 20120920

REACTIONS (1)
  - Renal failure acute [None]
